FAERS Safety Report 7727795-3 (Version None)
Quarter: 2011Q3

REPORT INFORMATION
  Report Type: 
  Country: None (occurrence: None)
  Receive Date: 20110905
  Receipt Date: 20110830
  Transmission Date: 20111222
  Serious: Yes (Hospitalization)
  Sender: FDA-Public Use
  Company Number: US-BRISTOL-MYERS SQUIBB COMPANY-15983364

PATIENT
  Age: 75 Year
  Sex: Female
  Weight: 91 kg

DRUGS (2)
  1. CARBOPLATIN [Suspect]
     Indication: NON-SMALL CELL LUNG CANCER
     Dosage: 16JUN-14JUL11(29 DAYS) INTERRUPTED ON 04AUG2011
     Route: 042
     Dates: start: 20110616
  2. PACLITAXEL [Suspect]
     Indication: NON-SMALL CELL LUNG CANCER
     Dosage: 16JUN-16JUN11(1 DAY) INTERRUPTED ON 04AUG2011
     Route: 042
     Dates: start: 20110616

REACTIONS (4)
  - DECREASED APPETITE [None]
  - NAUSEA [None]
  - EYELID OEDEMA [None]
  - FATIGUE [None]
